FAERS Safety Report 24782047 (Version 1)
Quarter: 2024Q4

REPORT INFORMATION
  Report Type: Spontaneous
  Country: US (occurrence: US)
  Receive Date: 20241227
  Receipt Date: 20241227
  Transmission Date: 20250115
  Serious: Yes (Hospitalization, Other)
  Sender: AUROBINDO
  Company Number: US-MLMSERVICE-20241209-PI284891-00117-1

PATIENT
  Age: 50 Year
  Sex: Female

DRUGS (4)
  1. DEXAMETHASONE [Suspect]
     Active Substance: DEXAMETHASONE
     Indication: Neuroendocrine tumour
     Dosage: 4 MILLIGRAM, ONCE A DAY, HIGH-DOSE (UP TO 4 MG DAILY)
     Route: 065
  2. DEXAMETHASONE [Suspect]
     Active Substance: DEXAMETHASONE
     Indication: Metastases to liver
  3. OCTREOTIDE [Suspect]
     Active Substance: OCTREOTIDE
     Indication: Neuroendocrine tumour
     Dosage: 400 MICROGRAM, 3 TIMES A DAY
     Route: 065
  4. OCTREOTIDE [Suspect]
     Active Substance: OCTREOTIDE
     Indication: Metastases to liver

REACTIONS (4)
  - Weight increased [Unknown]
  - Drug ineffective [Recovered/Resolved]
  - Hypervolaemia [Unknown]
  - Cushingoid [Unknown]
